FAERS Safety Report 7237346-8 (Version None)
Quarter: 2011Q1

REPORT INFORMATION
  Report Type: 
  Country: None (occurrence: None)
  Receive Date: 20110121
  Receipt Date: 20101026
  Transmission Date: 20110831
  Serious: No
  Sender: FDA-Public Use
  Company Number: A0888784A

PATIENT
  Age: 51 Year
  Sex: Female

DRUGS (2)
  1. MEPRON [Suspect]
     Indication: LYME DISEASE
     Dosage: 750MG TWICE PER DAY
     Route: 048
  2. AZITHROMYCIN [Concomitant]

REACTIONS (1)
  - XANTHOPSIA [None]
